FAERS Safety Report 7741113-6 (Version None)
Quarter: 2011Q3

REPORT INFORMATION
  Report Type: 
  Country: None (occurrence: None)
  Receive Date: 20110909
  Receipt Date: 20110905
  Transmission Date: 20111222
  Serious: Yes (Other)
  Sender: FDA-Public Use
  Company Number: FR-PFIZER INC-2010179430

PATIENT
  Age: 45 Year
  Sex: Female
  Weight: 71 kg

DRUGS (1)
  1. VARENICLINE TARTRATE [Suspect]
     Indication: SMOKING CESSATION THERAPY
     Dosage: 1 DF, 2X/DAY
     Dates: start: 20100718, end: 20100809

REACTIONS (13)
  - WEIGHT INCREASED [None]
  - ABDOMINAL PAIN [None]
  - TUNNEL VISION [None]
  - SCLERODERMA [None]
  - INFLAMMATION [None]
  - DIABETIC KETOACIDOSIS [None]
  - ANAEMIA [None]
  - HYPOTHYROIDISM [None]
  - GENERALISED OEDEMA [None]
  - DIABETES MELLITUS [None]
  - RETINOPATHY [None]
  - LEUKOCYTOSIS [None]
  - CONSTIPATION [None]
